FAERS Safety Report 6431391-8 (Version None)
Quarter: 2009Q4

REPORT INFORMATION
  Report Type: 
  Country: None (occurrence: None)
  Receive Date: 20091106
  Receipt Date: 20091029
  Transmission Date: 20100525
  Serious: Yes (Death, Other)
  Sender: FDA-Public Use
  Company Number: PHHY2009JP14012

PATIENT
  Age: 70 Year
  Sex: Male

DRUGS (1)
  1. GLEEVEC [Suspect]
     Indication: GASTROINTESTINAL STROMAL TUMOUR
     Dosage: 400 MG
     Dates: start: 20080901, end: 20081101

REACTIONS (6)
  - COLECTOMY [None]
  - DERMATITIS [None]
  - OEDEMA [None]
  - PERITONEAL HAEMORRHAGE [None]
  - PNEUMONIA ASPIRATION [None]
  - SURGERY [None]
